FAERS Safety Report 10058614 (Version 1)
Quarter: 2014Q2

REPORT INFORMATION
  Report Type: Report from Study
  Country: DE (occurrence: DE)
  Receive Date: 20140404
  Receipt Date: 20140404
  Transmission Date: 20141212
  Serious: Yes (Death, Other)
  Sender: FDA-Public Use
  Company Number: DE-ROCHE-1370289

PATIENT
  Sex: 0

DRUGS (10)
  1. RITUXIMAB [Suspect]
     Indication: NON-HODGKIN^S LYMPHOMA
     Dosage: ON DAY 1
     Route: 042
  2. RITUXIMAB [Suspect]
     Dosage: ON DAY -5
     Route: 042
  3. DEXAMETHASONE [Suspect]
     Indication: NON-HODGKIN^S LYMPHOMA
     Dosage: ON DAYS 1-4
     Route: 042
  4. CYTARABINE [Suspect]
     Indication: NON-HODGKIN^S LYMPHOMA
     Dosage: ON DAY 3
     Route: 042
  5. CISPLATINUM [Suspect]
     Indication: NON-HODGKIN^S LYMPHOMA
     Dosage: OVER 24 HOUR ON DAY 1
     Route: 042
  6. TREOSULFAN [Suspect]
     Indication: NON-HODGKIN^S LYMPHOMA
     Dosage: 14 G/M2 PER DAY ON DAYS -4 AND -2
     Route: 042
  7. TREOSULFAN [Suspect]
     Dosage: 14 G/M2 DAILY ON DAYS -6 TO-4
     Route: 042
  8. ETOPOSIDE [Suspect]
     Indication: NON-HODGKIN^S LYMPHOMA
     Dosage: ON DAYS -4 AND -2
     Route: 042
  9. CARBOPLATINUM [Suspect]
     Indication: NON-HODGKIN^S LYMPHOMA
     Dosage: ON DAYS -4 TO -2
     Route: 042
  10. FILGRASTIM [Concomitant]
     Dosage: AFTER THE SECOND CYCLE OF (R)-DHAP
     Route: 058

REACTIONS (20)
  - Death [Fatal]
  - Infection [Fatal]
  - Leukopenia [Unknown]
  - Thrombocytopenia [Unknown]
  - Blood bilirubin abnormal [Unknown]
  - Transaminases abnormal [Unknown]
  - Blood alkaline phosphatase abnormal [Unknown]
  - Nausea [Unknown]
  - Vomiting [Unknown]
  - Diarrhoea [Unknown]
  - Stomatitis [Unknown]
  - Gastrointestinal disorder [Unknown]
  - Blood creatinine abnormal [Unknown]
  - Renal disorder [Unknown]
  - Bladder disorder [Unknown]
  - Lung disorder [Unknown]
  - Pyrexia [Unknown]
  - Hypersensitivity [Unknown]
  - Septic shock [Unknown]
  - Renal failure [Unknown]
